FAERS Safety Report 22589990 (Version 1)
Quarter: 2023Q2

REPORT INFORMATION
  Report Type: Spontaneous
  Country: US (occurrence: US)
  Receive Date: 20230612
  Receipt Date: 20230612
  Transmission Date: 20230722
  Serious: No
  Sender: FDA-Public Use
  Company Number: US-SA-SAC20230608000022

PATIENT

DRUGS (2)
  1. DUPILUMAB [Suspect]
     Active Substance: DUPILUMAB
     Dosage: UNK
     Route: 065
  2. ABROCITINIB [Suspect]
     Active Substance: ABROCITINIB
     Dosage: UNK
     Route: 065

REACTIONS (1)
  - Drug ineffective [Unknown]
